FAERS Safety Report 8165672-7 (Version None)
Quarter: 2012Q1

REPORT INFORMATION
  Report Type: 
  Country: None (occurrence: None)
  Receive Date: 20120223
  Receipt Date: 20120223
  Transmission Date: 20120608
  Serious: No
  Sender: FDA-Public Use
  Company Number: None

PATIENT
  Age: 73 Year
  Sex: Female
  Weight: 62.5964 kg

DRUGS (1)
  1. PRADAXA [Suspect]
     Indication: ATRIAL FIBRILLATION
     Dosage: 1 CAPSULE 2 TIMES DAILY ORAL
     Route: 048
     Dates: start: 20111109, end: 20111212

REACTIONS (2)
  - RECTAL HAEMORRHAGE [None]
  - GINGIVAL BLEEDING [None]
